FAERS Safety Report 7804182-0 (Version None)
Quarter: 2011Q4

REPORT INFORMATION
  Report Type: 
  Country: None (occurrence: None)
  Receive Date: 20111010
  Receipt Date: 20110930
  Transmission Date: 20120403
  Serious: Yes (Hospitalization)
  Sender: FDA-Public Use
  Company Number: DK-SANOFI-AVENTIS-2011SA064423

PATIENT
  Age: 62 Year
  Sex: Female

DRUGS (4)
  1. METFORMIN HYDROCHLORIDE [Suspect]
     Dosage: UNK
     Route: 065
  2. GLIMEPIRIDE [Suspect]
     Dosage: UNK
     Route: 065
  3. GALVUS [Suspect]
     Route: 065
     Dates: start: 20101101
  4. BETA BLOCKING AGENTS [Concomitant]

REACTIONS (2)
  - VENTRICULAR FIBRILLATION [None]
  - TACHYCARDIA [None]
